FAERS Safety Report 10716207 (Version 1)
Quarter: 2015Q1

REPORT INFORMATION
  Report Type: Spontaneous
  Country: US (occurrence: None)
  Receive Date: 20150115
  Receipt Date: 20150115
  Transmission Date: 20150721
  Serious: No
  Sender: FDA-Public Use
  Company Number: None

PATIENT
  Age: 57 Year
  Sex: Female

DRUGS (1)
  1. AFINITOR [Suspect]
     Active Substance: EVEROLIMUS
     Indication: RENAL CANCER
     Dosage: 10MG, 1X QD, PO
     Route: 048
     Dates: start: 20141217, end: 20150107

REACTIONS (4)
  - Pharyngeal disorder [None]
  - Stomatitis [None]
  - Tongue disorder [None]
  - Blister [None]

NARRATIVE: CASE EVENT DATE: 20141231
